FAERS Safety Report 6406390-2 (Version None)
Quarter: 2009Q4

REPORT INFORMATION
  Report Type: 
  Country: None (occurrence: None)
  Receive Date: 20091014
  Receipt Date: 20091006
  Transmission Date: 20100525
  Serious: No
  Sender: FDA-Public Use
  Company Number: 20097338

PATIENT
  Sex: Female

DRUGS (4)
  1. LIORESAL [Suspect]
     Indication: MUSCLE SPASTICITY
     Dosage: DAILY, INTRATHECAL
     Route: 037
  2. ZICONOTIDE [Concomitant]
  3. PERCOCET [Concomitant]
  4. MORPHINE [Concomitant]

REACTIONS (22)
  - ARTHRODESIS [None]
  - ASTHENIA [None]
  - CARDIOVASCULAR DISORDER [None]
  - COGNITIVE DISORDER [None]
  - DEEP VEIN THROMBOSIS [None]
  - DIABETES MELLITUS INADEQUATE CONTROL [None]
  - DRUG WITHDRAWAL SYNDROME [None]
  - FOOT DEFORMITY [None]
  - HYPOTENSION [None]
  - INFECTION [None]
  - MENTAL STATUS CHANGES [None]
  - MUSCLE SPASTICITY [None]
  - NAUSEA [None]
  - PAIN IN EXTREMITY [None]
  - PULMONARY EMBOLISM [None]
  - PYREXIA [None]
  - RENAL FAILURE ACUTE [None]
  - RENAL FAILURE CHRONIC [None]
  - SEPSIS [None]
  - SLEEP DISORDER [None]
  - URINARY TRACT INFECTION [None]
  - VOMITING [None]
